FAERS Safety Report 14860550 (Version 1)
Quarter: 2018Q2

REPORT INFORMATION
  Report Type: Spontaneous
  Country: MA (occurrence: MA)
  Receive Date: 20180508
  Receipt Date: 20180508
  Transmission Date: 20180711
  Serious: Yes (Other)
  Sender: FDA-Public Use
  Company Number: MA-MYLANLABS-2018M1028609

PATIENT
  Age: 57 Year

DRUGS (1)
  1. INDOMETACIN [Suspect]
     Active Substance: INDOMETHACIN
     Indication: RHEUMATOID ARTHRITIS
     Dosage: EYE DROPS
     Route: 065

REACTIONS (2)
  - Iridocele [Unknown]
  - Corneal perforation [Recovered/Resolved]
